FAERS Safety Report 16263138 (Version 3)
Quarter: 2019Q3

REPORT INFORMATION
  Report Type: Spontaneous
  Country: US (occurrence: US)
  Receive Date: 20190502
  Receipt Date: 20190816
  Transmission Date: 20191004
  Serious: Yes (Death, Hospitalization, Other)
  Sender: FDA-Public Use
  Company Number: US-BIOGEN-2019BI00729079

PATIENT
  Age: 19 Year
  Sex: Female

DRUGS (7)
  1. GLYCOLAX [Concomitant]
     Active Substance: POLYETHYLENE GLYCOL 3350
     Indication: INFLUENZA
     Route: 065
  2. SPINRAZA [Suspect]
     Active Substance: NUSINERSEN
     Indication: SPINAL MUSCULAR ATROPHY
     Route: 037
     Dates: start: 20190211, end: 20190419
  3. NEXIUM [Concomitant]
     Active Substance: ESOMEPRAZOLE MAGNESIUM
     Indication: INFLUENZA
     Route: 065
  4. PROVENTIL [Concomitant]
     Active Substance: ALBUTEROL
     Indication: INFLUENZA
     Route: 065
  5. VITAMIN D [Concomitant]
     Active Substance: VITAMIN D NOS
     Indication: INFLUENZA
     Route: 065
  6. CLARITIN [Concomitant]
     Active Substance: LORATADINE
     Indication: INFLUENZA
     Route: 065
  7. ATROVENT [Concomitant]
     Active Substance: IPRATROPIUM BROMIDE
     Indication: INFLUENZA
     Route: 065

REACTIONS (8)
  - Spinal muscular atrophy [Recovered/Resolved]
  - Acute respiratory failure [Fatal]
  - Influenza [Unknown]
  - Contrast media reaction [Fatal]
  - Dyspnoea [Unknown]
  - Ependymoma [Unknown]
  - Glioma [Unknown]
  - Chest discomfort [Unknown]

NARRATIVE: CASE EVENT DATE: 20190408
